FAERS Safety Report 15314735 (Version 1)
Quarter: 2018Q3

REPORT INFORMATION
  Report Type: Spontaneous
  Country: US (occurrence: US)
  Receive Date: 20180824
  Receipt Date: 20180824
  Transmission Date: 20181010
  Serious: No
  Sender: FDA-Public Use
  Company Number: US-BAYER-2018-156354

PATIENT
  Age: 86 Year
  Sex: Female
  Weight: 51 kg

DRUGS (2)
  1. LOTRIMIN ULTRA ANTIFUNGAL [Suspect]
     Active Substance: BUTENAFINE HYDROCHLORIDE
     Indication: THERAPEUTIC SKIN CARE TOPICAL
     Dosage: 1 DF, UNK
     Route: 061
     Dates: start: 20180817, end: 20180817
  2. LOTRIMIN [Suspect]
     Active Substance: CLOTRIMAZOLE
     Indication: THERAPEUTIC SKIN CARE TOPICAL
     Dosage: DOSE
     Route: 061

REACTIONS (2)
  - Product use in unapproved indication [Unknown]
  - Off label use [Unknown]

NARRATIVE: CASE EVENT DATE: 20180817
